FAERS Safety Report 8462454-3 (Version None)
Quarter: 2012Q2

REPORT INFORMATION
  Report Type: 
  Country: None (occurrence: None)
  Receive Date: 20120625
  Receipt Date: 20120611
  Transmission Date: 20120825
  Serious: Yes (Hospitalization)
  Sender: FDA-Public Use
  Company Number: NL-MYLANLABS-2012S1011970

PATIENT
  Age: 25 Year
  Sex: Male

DRUGS (2)
  1. CLOZAPINE [Suspect]
     Indication: SCHIZOPHRENIA
     Dosage: 400MG
     Route: 065
  2. FLUVOXAMINE MALEATE [Concomitant]
     Route: 065

REACTIONS (2)
  - SINUS TACHYCARDIA [None]
  - METABOLIC SYNDROME [None]
